FAERS Safety Report 23459756 (Version 2)
Quarter: 2024Q1

REPORT INFORMATION
  Report Type: Report from Study
  Country: BR (occurrence: BR)
  Receive Date: 20240131
  Receipt Date: 20240212
  Transmission Date: 20240410
  Serious: Yes (Other)
  Sender: FDA-Public Use
  Company Number: BR-JNJFOC-20240166352

PATIENT
  Age: 45 Year
  Sex: Male
  Weight: 85 kg

DRUGS (3)
  1. SPRAVATO [Suspect]
     Active Substance: ESKETAMINE
     Indication: Major depression
     Dates: start: 20231113
  2. SPRAVATO [Suspect]
     Active Substance: ESKETAMINE
     Dosage: LAST ADMINISTERED DOSE
     Dates: start: 20240104
  3. SPRAVATO [Suspect]
     Active Substance: ESKETAMINE
     Dosage: 2 DEVICES (56 MG) ONCE A WEEK.?RECENT ADMINISTERED DOSE
     Dates: start: 20240202

REACTIONS (2)
  - Major depression [Unknown]
  - Drug ineffective [Unknown]
